FAERS Safety Report 12779028 (Version 1)
Quarter: 2016Q3

REPORT INFORMATION
  Report Type: Spontaneous
  Country: US (occurrence: US)
  Receive Date: 20160926
  Receipt Date: 20160926
  Transmission Date: 20161109
  Serious: No
  Sender: FDA-Public Use
  Company Number: US-JAZZ-2016-US-011379

PATIENT
  Sex: Female

DRUGS (17)
  1. ADDERALL [Concomitant]
     Active Substance: AMPHETAMINE ASPARTATE\AMPHETAMINE SULFATE\DEXTROAMPHETAMINE SACCHARATE\DEXTROAMPHETAMINE SULFATE
  2. XYREM [Suspect]
     Active Substance: SODIUM OXYBATE
     Indication: CATAPLEXY
     Dosage: DOSE ADJUSTMENTS
     Route: 048
     Dates: start: 201101, end: 201102
  3. VITAMIN A + D [Concomitant]
  4. VENLAFAXINE HCL [Concomitant]
     Active Substance: VENLAFAXINE HYDROCHLORIDE
  5. CLONIDINE HCL [Concomitant]
     Active Substance: CLONIDINE HYDROCHLORIDE
  6. DEPLIN [Concomitant]
     Active Substance: LEVOMEFOLATE CALCIUM
  7. XYREM [Suspect]
     Active Substance: SODIUM OXYBATE
     Indication: NARCOLEPSY
     Dosage: 2.25 G, BID
     Route: 048
     Dates: start: 201101, end: 201101
  8. XYREM [Suspect]
     Active Substance: SODIUM OXYBATE
     Dosage: 4.5 G, BID
     Route: 048
     Dates: start: 201102
  9. ABILIFY [Concomitant]
     Active Substance: ARIPIPRAZOLE
  10. INTUNIV [Concomitant]
     Active Substance: GUANFACINE HYDROCHLORIDE
  11. GABAPENTIN. [Concomitant]
     Active Substance: GABAPENTIN
  12. CYMBALTA [Concomitant]
     Active Substance: DULOXETINE HYDROCHLORIDE
  13. KLONOPIN [Concomitant]
     Active Substance: CLONAZEPAM
  14. ADDERALL [Concomitant]
     Active Substance: AMPHETAMINE ASPARTATE\AMPHETAMINE SULFATE\DEXTROAMPHETAMINE SACCHARATE\DEXTROAMPHETAMINE SULFATE
  15. CLONAZEPAM. [Concomitant]
     Active Substance: CLONAZEPAM
  16. KEPPRA [Concomitant]
     Active Substance: LEVETIRACETAM
  17. VITAMIN B12 [Concomitant]
     Active Substance: CYANOCOBALAMIN

REACTIONS (1)
  - Malaise [Not Recovered/Not Resolved]
